FAERS Safety Report 4900701-2 (Version None)
Quarter: 2006Q1

REPORT INFORMATION
  Report Type: 
  Country: None (occurrence: None)
  Receive Date: 20060201
  Receipt Date: 20060127
  Transmission Date: 20060701
  Serious: Yes (Life-Threatening, Hospitalization, Other)
  Sender: FDA-Public Use
  Company Number: US-2005-027960

PATIENT
  Age: 42 Year
  Sex: Male
  Weight: 71.7 kg

DRUGS (8)
  1. LEUKINE [Suspect]
     Indication: CROHN'S DISEASE
     Dosage: 1.5 UG/KG, 1X/DAY, SUBCUTANEOUS
     Route: 058
     Dates: start: 20050311, end: 20051222
  2. PREDNISONE [Concomitant]
  3. ANTIBIOTICS [Concomitant]
  4. DEMEROL [Concomitant]
  5. VERSED [Concomitant]
  6. UNKNOWN BOWEL PREPARATION [Concomitant]
  7. PREDNISONE [Concomitant]
  8. PERCOCET [Concomitant]

REACTIONS (5)
  - ACUTE MYOCARDIAL INFARCTION [None]
  - CORONARY ARTERY STENOSIS [None]
  - INJECTION SITE PAIN [None]
  - PAIN IN EXTREMITY [None]
  - WEIGHT DECREASED [None]
